FAERS Safety Report 5084244-4 (Version None)
Quarter: 2006Q3

REPORT INFORMATION
  Report Type: 
  Country: None (occurrence: None)
  Receive Date: 20060821
  Receipt Date: 20060419
  Transmission Date: 20061208
  Serious: No
  Sender: FDA-Public Use
  Company Number: US-BRISTOL-MYERS SQUIBB COMPANY-13351416

PATIENT
  Age: 60 Year
  Sex: Female
  Weight: 68 kg

DRUGS (3)
  1. TEQUIN [Suspect]
     Indication: THERMAL BURN
     Dosage: THERAPY: 7 OR 10 DAYS.
     Dates: start: 20060207
  2. PHENOBARBITAL TAB [Concomitant]
     Dates: start: 19710101
  3. FOSAMAX [Concomitant]

REACTIONS (1)
  - LOSS OF CONSCIOUSNESS [None]
